FAERS Safety Report 7896573-7 (Version None)
Quarter: 2011Q4

REPORT INFORMATION
  Report Type: 
  Country: None (occurrence: None)
  Receive Date: 20111107
  Receipt Date: 20111025
  Transmission Date: 20120403
  Serious: Yes (Death, Other)
  Sender: FDA-Public Use
  Company Number: BR-PAR PHARMACEUTICAL, INC-2011SCPR003380

PATIENT

DRUGS (1)
  1. HYDROXYUREA [Suspect]
     Indication: POLYCYTHAEMIA VERA
     Dosage: 0.5 -1.5G / DAY
     Route: 065
     Dates: start: 19960101

REACTIONS (9)
  - SQUAMOUS CELL CARCINOMA [None]
  - ICHTHYOSIS ACQUIRED [None]
  - DEATH [None]
  - SKIN ULCER [None]
  - DRY SKIN [None]
  - NAIL PIGMENTATION [None]
  - ACUTE MYOCARDIAL INFARCTION [None]
  - SKIN HYPERPIGMENTATION [None]
  - SKIN ATROPHY [None]
